FAERS Safety Report 8378366-X (Version None)
Quarter: 2012Q2

REPORT INFORMATION
  Report Type: 
  Country: None (occurrence: None)
  Receive Date: 20120521
  Receipt Date: 20120511
  Transmission Date: 20120825
  Serious: No
  Sender: FDA-Public Use
  Company Number: GER/UKI/12/0024207

PATIENT
  Age: 66 Year
  Sex: Male
  Weight: 90 kg

DRUGS (10)
  1. CODEINE SULFATE [Concomitant]
  2. DAPTOMYCIN [Suspect]
     Indication: ARTHROPATHY
     Dosage: 700 MG, 1 IN 1 D, INTRAVENOUS (NOT OTHERWISE SPECIFIED)
     Route: 042
     Dates: start: 20120110, end: 20120113
  3. PREDNISOLONE [Concomitant]
  4. ACETAMINOPHEN [Concomitant]
  5. ENOXAPARIN SODIUM [Concomitant]
  6. LEVOFLOXACIN [Suspect]
     Indication: PRODUCT USED FOR UNKNOWN INDICATION
     Dosage: 500 MG, 2 IN 1 D
  7. AMLODIPINE [Concomitant]
  8. RIVAROXABAN (RIVAROXABAN) [Concomitant]
  9. LISINOPRIL [Concomitant]
  10. OMEPRAZOLE [Concomitant]

REACTIONS (3)
  - LOWER RESPIRATORY TRACT INFECTION [None]
  - PNEUMONIA [None]
  - DYSPNOEA [None]
